FAERS Safety Report 15020587 (Version 1)
Quarter: 2018Q2

REPORT INFORMATION
  Report Type: Spontaneous
  Country: US (occurrence: US)
  Receive Date: 20180618
  Receipt Date: 20180618
  Transmission Date: 20180711
  Serious: No
  Sender: FDA-Public Use
  Company Number: US-MALLINCKRODT-T201704398

PATIENT
  Sex: Female
  Weight: 45 kg

DRUGS (1)
  1. HYDROCODONE/ACETAMINOPHEN [Suspect]
     Active Substance: ACETAMINOPHEN\HYDROCODONE
     Indication: PAIN MANAGEMENT
     Dosage: 5MG/325MG, AS NEEDED -MAY BE 2 TABLETS A WEEK
     Route: 048

REACTIONS (7)
  - Product taste abnormal [Unknown]
  - Constipation [Recovered/Resolved]
  - Feeling abnormal [Unknown]
  - Hangover [Recovered/Resolved]
  - Nausea [Recovered/Resolved]
  - Dependence [Unknown]
  - Product size issue [Unknown]
